FAERS Safety Report 6032110-X (Version None)
Quarter: 2009Q1

REPORT INFORMATION
  Report Type: 
  Country: None (occurrence: None)
  Receive Date: 20090107
  Receipt Date: 20081225
  Transmission Date: 20090719
  Serious: Yes (Hospitalization)
  Sender: FDA-Public Use
  Company Number: JP-DEXPHARM-20081524

PATIENT
  Age: 82 Year
  Sex: Male

DRUGS (10)
  1. OMEPRAZOLE [Suspect]
     Dosage: 20 MG MILLGRAM(S), 1 IN 1 DAY, ORAL
     Route: 048
     Dates: start: 20070707, end: 20070724
  2. MELOXICAM [Suspect]
     Dosage: 10 MG MILLGRAM(S), ORAL 1 IN 1 DAY
     Dates: start: 20070713, end: 20070731
  3. HEPARIN [Suspect]
     Dates: start: 20070713, end: 20070726
  4. WARFARIN SODIUM [Suspect]
     Dosage: 1 MG/KG MILLIGRAM(S )/KILOGRAM
     Dates: start: 20070719, end: 20070724
  5. WARFARIN SODIUM [Suspect]
     Dosage: 2 MG/KG MILLIGRAM(S )/KILOGRAM
     Dates: start: 20070724, end: 20070730
  6. WARFARIN SODIUM [Suspect]
     Dosage: 1.5 MG/KG MILLIGRAM (S)/KILOGRAM
     Dates: start: 20070730, end: 20070731
  7. WARFARIN SODIUM [Suspect]
     Dosage: 1 MG/KG MILLIGRAM(S )/KILOGRAM
     Dates: start: 20070802
  8. S-1 [Suspect]
     Dosage: 80 MG MILLGRAM(S)
     Dates: start: 20070521, end: 20070625
  9. GEMCITABINE [Suspect]
     Dates: start: 20070521, end: 20070625
  10. WARFARIN SODIUM [Suspect]
     Dosage: 3 MG/KG MILLIGRAM(S )/KILOGRAM
     Dates: start: 20070314, end: 20070706

REACTIONS (10)
  - COAGULOPATHY [None]
  - DRUG INTERACTION [None]
  - GINGIVAL BLEEDING [None]
  - HAEMATURIA [None]
  - HAEMORRHAGIC DIATHESIS [None]
  - INTERNATIONAL NORMALISED RATIO DECREASED [None]
  - JUGULAR VEIN THROMBOSIS [None]
  - LYMPHOEDEMA [None]
  - METASTASES TO LYMPH NODES [None]
  - PULMONARY EMBOLISM [None]
